FAERS Safety Report 4952728-2 (Version None)
Quarter: 2006Q1

REPORT INFORMATION
  Report Type: 
  Country: None (occurrence: None)
  Receive Date: 20060320
  Receipt Date: 20040823
  Transmission Date: 20060701
  Serious: Yes (Hospitalization)
  Sender: FDA-Public Use
  Company Number: HQ4639814OCT2002

PATIENT
  Age: 53 Year
  Sex: Male
  Weight: 101.7 kg

DRUGS (11)
  1. MYLOTARG [Suspect]
     Indication: ACUTE MYELOID LEUKAEMIA
     Dosage: 18 MG 1X PER 1 DAY, INTRAVENOUS
     Route: 042
     Dates: start: 20020913, end: 20020913
  2. MYLOTARG [Suspect]
     Indication: ACUTE MYELOID LEUKAEMIA
     Dosage: 18 MG 1X PER 1 DAY, INTRAVENOUS
     Route: 042
     Dates: start: 20020926, end: 20020926
  3. ZOLOFT [Concomitant]
  4. PREVACID [Concomitant]
  5. TOPROL-XL [Concomitant]
  6. AMBIEN [Concomitant]
  7. CIPROFLOXACIN HCL [Concomitant]
  8. ACYCLOVIR [Concomitant]
  9. SENOKOT-S (DOCUSATE SODIUM/SENNA) [Concomitant]
  10. DIFLUCAN [Concomitant]
  11. NOVOLIN N [Concomitant]

REACTIONS (4)
  - BLOOD CULTURE POSITIVE [None]
  - FEBRILE NEUTROPENIA [None]
  - INFUSION RELATED REACTION [None]
  - STAPHYLOCOCCAL INFECTION [None]
